FAERS Safety Report 5127025-5 (Version None)
Quarter: 2006Q4

REPORT INFORMATION
  Report Type: 
  Country: None (occurrence: None)
  Receive Date: 20061013
  Receipt Date: 20061006
  Transmission Date: 20070319
  Serious: Yes (Hospitalization)
  Sender: FDA-Public Use
  Company Number: 464669

PATIENT
  Age: 73 Year
  Sex: Male

DRUGS (5)
  1. ARTIST [Suspect]
     Indication: MYOCARDIAL INFARCTION
     Route: 048
     Dates: start: 20060726, end: 20060823
  2. PANALDINE [Suspect]
     Indication: MYOCARDIAL INFARCTION
     Route: 048
     Dates: start: 20060726, end: 20060727
  3. FAMOTIDINE [Suspect]
     Indication: DRUG USE FOR UNKNOWN INDICATION
     Route: 065
  4. FAMOTIDINE [Suspect]
     Route: 048
  5. GASTER D [Concomitant]

REACTIONS (1)
  - LIVER DISORDER [None]
